FAERS Safety Report 5352508-2 (Version None)
Quarter: 2007Q2

REPORT INFORMATION
  Report Type: 
  Country: None (occurrence: None)
  Receive Date: 20070611
  Receipt Date: 20070606
  Transmission Date: 20071010
  Serious: Yes (Hospitalization)
  Sender: FDA-Public Use
  Company Number: US-ASTRAZENECA-2007UW13658

PATIENT
  Age: 53 Year
  Sex: Female
  Weight: 70.3 kg

DRUGS (2)
  1. TOPROL-XL [Suspect]
     Indication: HYPERTENSION
     Route: 048
  2. SYNTHROID [Concomitant]

REACTIONS (1)
  - HYPERSENSITIVITY [None]
